FAERS Safety Report 25796780 (Version 1)
Quarter: 2025Q3

REPORT INFORMATION
  Report Type: Spontaneous
  Country: PR (occurrence: PR)
  Receive Date: 20250912
  Receipt Date: 20250912
  Transmission Date: 20251020
  Serious: No
  Sender: ANI
  Company Number: PR-ANIPHARMA-2025-PR-000026

PATIENT
  Age: 64 Year
  Sex: Male
  Weight: 88.45 kg

DRUGS (1)
  1. CORTICOTROPIN [Suspect]
     Active Substance: CORTICOTROPIN
     Indication: Product used for unknown indication
     Dates: start: 20250218

REACTIONS (2)
  - Inflammation [Unknown]
  - Arthralgia [Unknown]
